FAERS Safety Report 5051342-0 (Version None)
Quarter: 2006Q3

REPORT INFORMATION
  Report Type: 
  Country: None (occurrence: None)
  Receive Date: 20060714
  Receipt Date: 20060706
  Transmission Date: 20061208
  Serious: Yes (Death)
  Sender: FDA-Public Use
  Company Number: US-MERCK-0607USA01188

PATIENT
  Sex: Male

DRUGS (1)
  1. MEVACOR [Suspect]
     Indication: BLOOD CHOLESTEROL INCREASED
     Route: 048

REACTIONS (4)
  - COMPLETED SUICIDE [None]
  - DEPRESSION [None]
  - DISTURBANCE IN ATTENTION [None]
  - NIGHTMARE [None]
